FAERS Safety Report 6841963-4 (Version None)
Quarter: 2010Q3

REPORT INFORMATION
  Report Type: 
  Country: None (occurrence: None)
  Receive Date: 20100714
  Receipt Date: 20070713
  Transmission Date: 20110219
  Serious: No
  Sender: FDA-Public Use
  Company Number: US-PFIZER INC-2007060329

PATIENT
  Sex: Female
  Weight: 68.2 kg

DRUGS (5)
  1. CHANTIX [Suspect]
     Indication: SMOKING CESSATION THERAPY
     Dates: start: 20070601
  2. PRILOSEC [Concomitant]
     Indication: GASTRIC DISORDER
  3. ARTHROTEC [Concomitant]
  4. LORAZEPAM [Concomitant]
  5. NITROGLYCERIN [Concomitant]
     Indication: CARDIAC DISORDER

REACTIONS (2)
  - ANXIETY [None]
  - NAUSEA [None]
